FAERS Safety Report 12168857 (Version 2)
Quarter: 2016Q1

REPORT INFORMATION
  Report Type: Spontaneous
  Country: GB (occurrence: GB)
  Receive Date: 20160310
  Receipt Date: 20160323
  Transmission Date: 20160526
  Serious: Yes (Other)
  Sender: FDA-Public Use
  Company Number: GB-BAUSCH-BL-2016-005420

PATIENT
  Age: 58 Year
  Sex: Female

DRUGS (104)
  1. LATANOPROST. [Suspect]
     Active Substance: LATANOPROST
     Route: 065
     Dates: start: 20070110
  2. LATANOPROST. [Suspect]
     Active Substance: LATANOPROST
     Route: 065
     Dates: start: 20071001
  3. HYDROCORTISONE. [Suspect]
     Active Substance: HYDROCORTISONE
     Indication: PRODUCT USED FOR UNKNOWN INDICATION
     Route: 065
     Dates: start: 20020514
  4. CLIMESSE [Suspect]
     Active Substance: ESTRADIOL VALERATE\NORETHINDRONE
     Route: 048
     Dates: start: 20050706
  5. CLIMESSE [Suspect]
     Active Substance: ESTRADIOL VALERATE\NORETHINDRONE
     Route: 048
     Dates: start: 20110119
  6. CLIMESSE [Suspect]
     Active Substance: ESTRADIOL VALERATE\NORETHINDRONE
     Route: 048
     Dates: start: 20010829
  7. KLIOFEM [Suspect]
     Active Substance: ESTRADIOL\NORETHINDRONE ACETATE
     Indication: PRODUCT USED FOR UNKNOWN INDICATION
     Dates: start: 20010207
  8. XALACOM [Suspect]
     Active Substance: LATANOPROST\TIMOLOL MALEATE
     Route: 065
     Dates: start: 20140909
  9. XALACOM [Suspect]
     Active Substance: LATANOPROST\TIMOLOL MALEATE
     Route: 065
     Dates: start: 20141111, end: 20151116
  10. XALACOM [Suspect]
     Active Substance: LATANOPROST\TIMOLOL MALEATE
     Route: 065
     Dates: start: 20150114
  11. XALACOM [Suspect]
     Active Substance: LATANOPROST\TIMOLOL MALEATE
     Route: 065
     Dates: start: 20140425
  12. XALACOM [Suspect]
     Active Substance: LATANOPROST\TIMOLOL MALEATE
     Route: 065
     Dates: start: 20150331
  13. XALACOM [Suspect]
     Active Substance: LATANOPROST\TIMOLOL MALEATE
     Route: 065
     Dates: start: 20150501
  14. LATANOPROST. [Suspect]
     Active Substance: LATANOPROST
     Indication: PRODUCT USED FOR UNKNOWN INDICATION
     Route: 065
     Dates: start: 20050414
  15. LATANOPROST. [Suspect]
     Active Substance: LATANOPROST
     Route: 065
     Dates: start: 20060119
  16. LATANOPROST. [Suspect]
     Active Substance: LATANOPROST
     Route: 065
     Dates: start: 20070813
  17. CLIMESSE [Suspect]
     Active Substance: ESTRADIOL VALERATE\NORETHINDRONE
     Route: 048
     Dates: start: 20110707
  18. CLIMESSE [Suspect]
     Active Substance: ESTRADIOL VALERATE\NORETHINDRONE
     Route: 048
     Dates: start: 20070509
  19. CLIMESSE [Suspect]
     Active Substance: ESTRADIOL VALERATE\NORETHINDRONE
     Route: 048
     Dates: start: 20040210
  20. CLIMESSE [Suspect]
     Active Substance: ESTRADIOL VALERATE\NORETHINDRONE
     Route: 048
     Dates: start: 20131210
  21. XALACOM [Suspect]
     Active Substance: LATANOPROST\TIMOLOL MALEATE
     Route: 065
     Dates: start: 20050607
  22. XALACOM [Suspect]
     Active Substance: LATANOPROST\TIMOLOL MALEATE
     Route: 065
     Dates: start: 20141111
  23. XALACOM [Suspect]
     Active Substance: LATANOPROST\TIMOLOL MALEATE
     Route: 065
     Dates: start: 20110512
  24. XALACOM [Suspect]
     Active Substance: LATANOPROST\TIMOLOL MALEATE
     Route: 065
     Dates: start: 20110715
  25. XALACOM [Suspect]
     Active Substance: LATANOPROST\TIMOLOL MALEATE
     Route: 065
     Dates: start: 20121015
  26. XALACOM [Suspect]
     Active Substance: LATANOPROST\TIMOLOL MALEATE
     Route: 065
     Dates: start: 20120423
  27. XALACOM [Suspect]
     Active Substance: LATANOPROST\TIMOLOL MALEATE
     Route: 065
     Dates: start: 20141230
  28. XALACOM [Suspect]
     Active Substance: LATANOPROST\TIMOLOL MALEATE
     Route: 065
     Dates: start: 20151230
  29. LATANOPROST. [Suspect]
     Active Substance: LATANOPROST
     Route: 065
     Dates: start: 20060306
  30. CLIMESSE [Suspect]
     Active Substance: ESTRADIOL VALERATE\NORETHINDRONE
     Indication: HORMONE REPLACEMENT THERAPY
     Route: 048
     Dates: start: 20020902
  31. CLIMESSE [Suspect]
     Active Substance: ESTRADIOL VALERATE\NORETHINDRONE
     Route: 048
     Dates: start: 20081006
  32. CLIMESSE [Suspect]
     Active Substance: ESTRADIOL VALERATE\NORETHINDRONE
     Route: 048
     Dates: start: 20121210
  33. CLIMESSE [Suspect]
     Active Substance: ESTRADIOL VALERATE\NORETHINDRONE
     Route: 048
     Dates: start: 20100218
  34. CLIMESSE [Suspect]
     Active Substance: ESTRADIOL VALERATE\NORETHINDRONE
     Route: 048
     Dates: start: 20071018
  35. ALCON (RETINOL\TOCOPHEROL) [Suspect]
     Active Substance: RETINOL\TOCOPHEROL
     Indication: PRODUCT USED FOR UNKNOWN INDICATION
     Route: 065
     Dates: start: 20100802, end: 20101119
  36. XALACOM [Suspect]
     Active Substance: LATANOPROST\TIMOLOL MALEATE
     Route: 065
     Dates: start: 20140714
  37. AMOXYCILLIN [Concomitant]
     Active Substance: AMOXICILLIN
     Dates: start: 20050107
  38. LATANOPROST. [Suspect]
     Active Substance: LATANOPROST
     Route: 065
     Dates: start: 20060120
  39. LATANOPROST. [Suspect]
     Active Substance: LATANOPROST
     Route: 065
     Dates: start: 20060725
  40. CLIMESSE [Suspect]
     Active Substance: ESTRADIOL VALERATE\NORETHINDRONE
     Route: 048
     Dates: start: 20140210
  41. CLIMESSE [Suspect]
     Active Substance: ESTRADIOL VALERATE\NORETHINDRONE
     Route: 048
     Dates: start: 20000921
  42. CLIMESSE [Suspect]
     Active Substance: ESTRADIOL VALERATE\NORETHINDRONE
     Route: 048
     Dates: start: 20061128
  43. INFLUENZA VIRUS [Suspect]
     Active Substance: INFLUENZA VIRUS VACCINE
     Indication: IMMUNISATION
     Dates: start: 20131028, end: 20131028
  44. XALACOM [Suspect]
     Active Substance: LATANOPROST\TIMOLOL MALEATE
     Indication: PRODUCT USED FOR UNKNOWN INDICATION
     Route: 065
     Dates: start: 20120103
  45. XALACOM [Suspect]
     Active Substance: LATANOPROST\TIMOLOL MALEATE
     Route: 065
     Dates: start: 20150603
  46. XALACOM [Suspect]
     Active Substance: LATANOPROST\TIMOLOL MALEATE
     Route: 065
     Dates: start: 20151006
  47. XALACOM [Suspect]
     Active Substance: LATANOPROST\TIMOLOL MALEATE
     Route: 065
     Dates: start: 20120716
  48. XALACOM [Suspect]
     Active Substance: LATANOPROST\TIMOLOL MALEATE
     Route: 065
     Dates: start: 20110120
  49. XALACOM [Suspect]
     Active Substance: LATANOPROST\TIMOLOL MALEATE
     Route: 065
     Dates: start: 20110228
  50. LATANOPROST. [Suspect]
     Active Substance: LATANOPROST
     Route: 065
     Dates: start: 20070418
  51. LATANOPROST. [Suspect]
     Active Substance: LATANOPROST
     Route: 065
     Dates: start: 20080108
  52. CLIMESSE [Suspect]
     Active Substance: ESTRADIOL VALERATE\NORETHINDRONE
     Route: 048
     Dates: start: 20120105
  53. CLIMESSE [Suspect]
     Active Substance: ESTRADIOL VALERATE\NORETHINDRONE
     Route: 048
     Dates: start: 20080421
  54. CLIMESSE [Suspect]
     Active Substance: ESTRADIOL VALERATE\NORETHINDRONE
     Route: 048
     Dates: start: 20090330
  55. XALACOM [Suspect]
     Active Substance: LATANOPROST\TIMOLOL MALEATE
     Route: 065
     Dates: start: 20150305
  56. XALACOM [Suspect]
     Active Substance: LATANOPROST\TIMOLOL MALEATE
     Route: 065
     Dates: start: 20121112
  57. XALACOM [Suspect]
     Active Substance: LATANOPROST\TIMOLOL MALEATE
     Route: 065
     Dates: start: 20151116
  58. XALACOM [Suspect]
     Active Substance: LATANOPROST\TIMOLOL MALEATE
     Route: 065
     Dates: start: 20150917
  59. XALACOM [Suspect]
     Active Substance: LATANOPROST\TIMOLOL MALEATE
     Route: 065
     Dates: start: 20110321
  60. XALACOM [Suspect]
     Active Substance: LATANOPROST\TIMOLOL MALEATE
     Route: 065
     Dates: start: 20140522
  61. XALACOM [Suspect]
     Active Substance: LATANOPROST\TIMOLOL MALEATE
     Route: 065
     Dates: start: 20110426
  62. LATANOPROST. [Suspect]
     Active Substance: LATANOPROST
     Route: 065
     Dates: start: 20050929
  63. LATANOPROST. [Suspect]
     Active Substance: LATANOPROST
     Route: 065
     Dates: start: 20060515
  64. LATANOPROST. [Suspect]
     Active Substance: LATANOPROST
     Route: 065
     Dates: start: 20070604
  65. CLIMESSE [Suspect]
     Active Substance: ESTRADIOL VALERATE\NORETHINDRONE
     Route: 048
     Dates: start: 20130509
  66. XALACOM [Suspect]
     Active Substance: LATANOPROST\TIMOLOL MALEATE
     Route: 065
     Dates: start: 20130206
  67. XALACOM [Suspect]
     Active Substance: LATANOPROST\TIMOLOL MALEATE
     Route: 065
     Dates: start: 20110616
  68. XALACOM [Suspect]
     Active Substance: LATANOPROST\TIMOLOL MALEATE
     Route: 065
     Dates: start: 20141216
  69. XALACOM [Suspect]
     Active Substance: LATANOPROST\TIMOLOL MALEATE
     Route: 065
     Dates: start: 20120917
  70. LATANOPROST. [Suspect]
     Active Substance: LATANOPROST
     Route: 065
     Dates: start: 20051206
  71. LATANOPROST. [Suspect]
     Active Substance: LATANOPROST
     Route: 065
     Dates: start: 20070220
  72. LATANOPROST. [Suspect]
     Active Substance: LATANOPROST
     Route: 065
     Dates: start: 20071122
  73. HYDROCORTISONE. [Suspect]
     Active Substance: HYDROCORTISONE
     Route: 065
     Dates: start: 20110107
  74. CLIMESSE [Suspect]
     Active Substance: ESTRADIOL VALERATE\NORETHINDRONE
     Route: 048
     Dates: start: 20060105
  75. CLIMESSE [Suspect]
     Active Substance: ESTRADIOL VALERATE\NORETHINDRONE
     Route: 048
     Dates: start: 20050107
  76. CLIMESSE [Suspect]
     Active Substance: ESTRADIOL VALERATE\NORETHINDRONE
     Route: 048
     Dates: start: 20030210
  77. CLIMESSE [Suspect]
     Active Substance: ESTRADIOL VALERATE\NORETHINDRONE
     Route: 048
     Dates: start: 20120612
  78. CLIMESSE [Suspect]
     Active Substance: ESTRADIOL VALERATE\NORETHINDRONE
     Route: 048
     Dates: start: 20150401
  79. XALACOM [Suspect]
     Active Substance: LATANOPROST\TIMOLOL MALEATE
     Route: 065
     Dates: start: 20120612
  80. XALACOM [Suspect]
     Active Substance: LATANOPROST\TIMOLOL MALEATE
     Route: 065
     Dates: start: 20140812
  81. XALACOM [Suspect]
     Active Substance: LATANOPROST\TIMOLOL MALEATE
     Route: 065
     Dates: start: 20150714
  82. XALACOM [Suspect]
     Active Substance: LATANOPROST\TIMOLOL MALEATE
     Route: 065
     Dates: start: 20150819
  83. XALACOM [Suspect]
     Active Substance: LATANOPROST\TIMOLOL MALEATE
     Route: 065
     Dates: start: 20141020
  84. XALACOM [Suspect]
     Active Substance: LATANOPROST\TIMOLOL MALEATE
     Route: 065
     Dates: start: 20120525
  85. XALACOM [Suspect]
     Active Substance: LATANOPROST\TIMOLOL MALEATE
     Route: 065
     Dates: start: 20120327
  86. XALACOM [Suspect]
     Active Substance: LATANOPROST\TIMOLOL MALEATE
     Route: 065
     Dates: start: 20120131
  87. AMOXYCILLIN [Concomitant]
     Active Substance: AMOXICILLIN
     Indication: PRODUCT USED FOR UNKNOWN INDICATION
     Dates: start: 19900305
  88. LATANOPROST. [Suspect]
     Active Substance: LATANOPROST
     Route: 065
     Dates: start: 20050623
  89. LATANOPROST. [Suspect]
     Active Substance: LATANOPROST
     Route: 065
     Dates: start: 20050725
  90. LATANOPROST. [Suspect]
     Active Substance: LATANOPROST
     Route: 065
     Dates: start: 20060901
  91. LATANOPROST. [Suspect]
     Active Substance: LATANOPROST
     Route: 065
     Dates: start: 20061103
  92. CLIMESSE [Suspect]
     Active Substance: ESTRADIOL VALERATE\NORETHINDRONE
     Route: 048
     Dates: start: 20090904
  93. CLIMESSE [Suspect]
     Active Substance: ESTRADIOL VALERATE\NORETHINDRONE
     Route: 048
     Dates: start: 20100811
  94. CLIMESSE [Suspect]
     Active Substance: ESTRADIOL VALERATE\NORETHINDRONE
     Route: 048
     Dates: start: 20010319
  95. CLIMESSE [Suspect]
     Active Substance: ESTRADIOL VALERATE\NORETHINDRONE
     Route: 048
     Dates: start: 20060620
  96. CLIMESSE [Suspect]
     Active Substance: ESTRADIOL VALERATE\NORETHINDRONE
     Route: 048
     Dates: start: 20140325
  97. CLIMESSE [Suspect]
     Active Substance: ESTRADIOL VALERATE\NORETHINDRONE
     Route: 048
     Dates: start: 20140826
  98. XALACOM [Suspect]
     Active Substance: LATANOPROST\TIMOLOL MALEATE
     Route: 065
     Dates: start: 20121210
  99. XALACOM [Suspect]
     Active Substance: LATANOPROST\TIMOLOL MALEATE
     Route: 065
     Dates: start: 20130111
  100. XALACOM [Suspect]
     Active Substance: LATANOPROST\TIMOLOL MALEATE
     Route: 065
     Dates: start: 20050412, end: 20050607
  101. XALACOM [Suspect]
     Active Substance: LATANOPROST\TIMOLOL MALEATE
     Route: 065
     Dates: start: 20140617
  102. XALACOM [Suspect]
     Active Substance: LATANOPROST\TIMOLOL MALEATE
     Route: 065
     Dates: start: 20120823
  103. XALACOM [Suspect]
     Active Substance: LATANOPROST\TIMOLOL MALEATE
     Route: 065
     Dates: start: 20120224
  104. XALACOM [Suspect]
     Active Substance: LATANOPROST\TIMOLOL MALEATE
     Route: 065
     Dates: start: 20101224, end: 20141020

REACTIONS (7)
  - Multiple sclerosis [Not Recovered/Not Resolved]
  - Finger deformity [Unknown]
  - Normal tension glaucoma [Not Recovered/Not Resolved]
  - Glaucoma [Not Recovered/Not Resolved]
  - Seborrhoeic keratosis [Not Recovered/Not Resolved]
  - Haemorrhoids [Not Recovered/Not Resolved]
  - Facial paralysis [Recovered/Resolved]
